FAERS Safety Report 25464644 (Version 2)
Quarter: 2025Q2

REPORT INFORMATION
  Report Type: Report from Study
  Country: CA (occurrence: CA)
  Receive Date: 20250621
  Receipt Date: 20250625
  Transmission Date: 20250716
  Serious: Yes (Other)
  Sender: ALEXION PHARMACEUTICALS
  Company Number: CA-AstraZeneca-CH-00892831A

PATIENT
  Age: 32 Year
  Weight: 92.5 kg

DRUGS (6)
  1. SOLIRIS [Suspect]
     Active Substance: ECULIZUMAB
     Indication: Paroxysmal nocturnal haemoglobinuria
     Dosage: 600 MILLIGRAM, QW
  2. SOLIRIS [Suspect]
     Active Substance: ECULIZUMAB
     Dosage: 900 MILLIGRAM, Q2W
  3. FOLIC ACID [Concomitant]
     Active Substance: FOLIC ACID
  4. PENICILLIN V [Concomitant]
     Active Substance: PENICILLIN V
     Dosage: 300 MILLIGRAM, BID
  5. ALBUTEROL [Concomitant]
     Active Substance: ALBUTEROL
  6. FLUTICASONE [Concomitant]
     Active Substance: FLUTICASONE
     Dosage: 2 INH, BID

REACTIONS (5)
  - Osteonecrosis [Recovered/Resolved]
  - Headache [Recovered/Resolved]
  - Fatigue [Recovered/Resolved]
  - Arthralgia [Recovered/Resolved]
  - Viral infection [Not Recovered/Not Resolved]
